FAERS Safety Report 17597425 (Version 1)
Quarter: 2020Q1

REPORT INFORMATION
  Report Type: Spontaneous
  Country: US (occurrence: US)
  Receive Date: 20200330
  Receipt Date: 20200330
  Transmission Date: 20200409
  Serious: No
  Sender: FDA-Public Use
  Company Number: US-AUROBINDO-AUR-APL-2020-007249

PATIENT
  Sex: Female

DRUGS (1)
  1. SERTRALINE HYDROCHLORIDE TABLETS 100MG [Suspect]
     Active Substance: SERTRALINE HYDROCHLORIDE
     Indication: POST-TRAUMATIC STRESS DISORDER
     Dosage: 1.5 DOSAGE FORM, ONCE A DAY (150 MG DAILY)
     Route: 048
     Dates: start: 2019

REACTIONS (6)
  - Mood altered [Unknown]
  - Therapeutic product effect decreased [Unknown]
  - Product physical issue [Unknown]
  - Migraine [Unknown]
  - Thinking abnormal [Unknown]
  - Eye pain [Unknown]
